FAERS Safety Report 19056438 (Version 1)
Quarter: 2021Q1

REPORT INFORMATION
  Report Type: Report from Study
  Country: FR (occurrence: FR)
  Receive Date: 20210324
  Receipt Date: 20210324
  Transmission Date: 20210420
  Serious: Yes (Hospitalization, Other)
  Sender: FDA-Public Use
  Company Number: FR-TAKEDA-FR201813598

PATIENT
  Age: 69 Year
  Sex: Female
  Weight: 66 kg

DRUGS (8)
  1. HYPERAMINE 30 [Concomitant]
     Indication: MEDICAL DIET
  2. GLUCOSE [Concomitant]
     Active Substance: DEXTROSE
     Indication: ENERGY INCREASED
  3. TEDUGLUTIDE [Suspect]
     Active Substance: TEDUGLUTIDE
     Indication: SHORT-BOWEL SYNDROME
     Dosage: 3.3 MG, 1X/DAY:QD
     Route: 065
     Dates: start: 20160929
  4. TEDUGLUTIDE [Suspect]
     Active Substance: TEDUGLUTIDE
     Indication: SHORT-BOWEL SYNDROME
     Dosage: 3.3 MG, 1X/DAY:QD
     Route: 065
     Dates: start: 20160929
  5. TEDUGLUTIDE [Suspect]
     Active Substance: TEDUGLUTIDE
     Indication: SHORT-BOWEL SYNDROME
     Dosage: 3.3 MG, 1X/DAY:QD
     Route: 065
     Dates: start: 20160929
  6. INSULINE [Concomitant]
     Active Substance: INSULIN NOS
     Indication: DIABETES MELLITUS
  7. TEDUGLUTIDE [Suspect]
     Active Substance: TEDUGLUTIDE
     Indication: SHORT-BOWEL SYNDROME
     Dosage: 3.3 MG, 1X/DAY:QD
     Route: 065
     Dates: start: 20160929
  8. HEPARIN [Concomitant]
     Active Substance: HEPARIN SODIUM
     Indication: THROMBOSIS

REACTIONS (2)
  - Haemodynamic instability [Recovered/Resolved]
  - Hepatic failure [Recovered/Resolved]

NARRATIVE: CASE EVENT DATE: 20180205
